FAERS Safety Report 8776214 (Version 1)
Quarter: 2012Q4

REPORT INFORMATION
  Report Type: 
  Country: US (occurrence: US)
  Receive Date: 20120910
  Receipt Date: 20120910
  Transmission Date: 20130627
  Serious: No
  Sender: FDA-Public Use
  Company Number: US-PFIZER INC-2012221388

PATIENT
  Sex: Female

DRUGS (3)
  1. LYRICA [Suspect]
     Indication: PAIN IN EXTREMITY
     Dosage: 25 mg, 1x/day
     Route: 048
     Dates: start: 20120824, end: 20120905
  2. LYRICA [Suspect]
     Indication: BURNING SENSATION
     Dosage: 50 mg, 1x/day
     Route: 048
     Dates: start: 20120905, end: 20120906
  3. LYRICA [Suspect]
     Dosage: 50 mg, 2x/day
     Route: 048
     Dates: start: 20120906

REACTIONS (1)
  - Drug ineffective [Unknown]
